FAERS Safety Report 6241889-3 (Version None)
Quarter: 2009Q2

REPORT INFORMATION
  Report Type: 
  Country: None (occurrence: None)
  Receive Date: 20090623
  Receipt Date: 20090612
  Transmission Date: 20091009
  Serious: Yes (Hospitalization)
  Sender: FDA-Public Use
  Company Number: GB-WYE-H09784409

PATIENT
  Age: 7 Year

DRUGS (3)
  1. AMIODARONE [Suspect]
     Indication: TACHYCARDIA
     Route: 048
     Dates: start: 20090522
  2. NYSTATIN [Concomitant]
     Indication: ORAL CANDIDIASIS
     Dosage: 10000 IU, FREQUENCY NOT SPECIFIED
     Route: 061
     Dates: start: 20090523
  3. AMIODARONE [Suspect]
     Dosage: 10 MCG/KG PER MINUTE
     Route: 042
     Dates: start: 20090519, end: 20090526

REACTIONS (2)
  - EYE SWELLING [None]
  - RASH MACULO-PAPULAR [None]
